FAERS Safety Report 5346278-1 (Version None)
Quarter: 2007Q2

REPORT INFORMATION
  Report Type: 
  Country: None (occurrence: None)
  Receive Date: 20070420
  Receipt Date: 20060807
  Transmission Date: 20071010
  Serious: Yes (Death, Hospitalization)
  Sender: FDA-Public Use
  Company Number: 06P-163-0339886-00

PATIENT
  Age: 30 Year
  Sex: Male
  Weight: 157 kg

DRUGS (2)
  1. DEPAKOTE [Suspect]
     Indication: BIPOLAR DISORDER
     Dosage: SEE IMAGE
     Route: 048
     Dates: start: 19970101, end: 20060807
  2. DEPAKOTE [Suspect]
     Indication: SCHIZOAFFECTIVE DISORDER
     Dosage: SEE IMAGE
     Route: 048
     Dates: start: 19970101, end: 20060807

REACTIONS (3)
  - CONSTIPATION [None]
  - DYSPEPSIA [None]
  - PANCREATITIS [None]
